FAERS Safety Report 6609152-6 (Version None)
Quarter: 2010Q1

REPORT INFORMATION
  Report Type: 
  Country: None (occurrence: None)
  Receive Date: 20100226
  Receipt Date: 20100226
  Transmission Date: 20100710
  Serious: Yes (Hospitalization)
  Sender: FDA-Public Use
  Company Number: None

PATIENT
  Sex: Female
  Weight: 76.4 kg

DRUGS (10)
  1. LAPATINIB 250 MG TABLETS GSK [Suspect]
     Indication: BREAST CANCER METASTATIC
     Dosage: 1250 MG DAILY PO
     Route: 048
     Dates: start: 20100104, end: 20100223
  2. DHER2+AS15 ASCI 500 MCG GSK [Suspect]
     Indication: BREAST CANCER METASTATIC
     Dosage: 500 MCG Q 2 WEEKS IM
     Route: 042
     Dates: start: 20100215, end: 20100215
  3. OXYCODONE HCL [Concomitant]
  4. MOTRIN [Concomitant]
  5. IBUPROFEN [Concomitant]
  6. LAPATNIB [Concomitant]
  7. PHENERGAN HCL [Concomitant]
  8. DHER VACCINE [Concomitant]
  9. IMODIUM [Concomitant]
  10. PHENTAMINE [Concomitant]

REACTIONS (5)
  - CHEST DISCOMFORT [None]
  - CHILLS [None]
  - COUGH [None]
  - FEELING HOT [None]
  - PYREXIA [None]
